FAERS Safety Report 6825315-9 (Version None)
Quarter: 2010Q3

REPORT INFORMATION
  Report Type: 
  Country: None (occurrence: None)
  Receive Date: 20100708
  Receipt Date: 20061212
  Transmission Date: 20110219
  Serious: No
  Sender: FDA-Public Use
  Company Number: US-PFIZER INC-2006154431

PATIENT
  Sex: Female
  Weight: 54.43 kg

DRUGS (6)
  1. CHANTIX [Suspect]
     Indication: SMOKING CESSATION THERAPY
     Route: 048
     Dates: start: 20061018
  2. SYNTHROID [Concomitant]
     Route: 048
  3. LIPITOR [Concomitant]
     Route: 048
  4. QUINAPRIL [Concomitant]
     Route: 048
  5. METFORMIN HCL [Concomitant]
     Route: 048
  6. GLIPIZIDE [Concomitant]
     Route: 048

REACTIONS (2)
  - SOMNOLENCE [None]
  - WEIGHT INCREASED [None]
